FAERS Safety Report 5845435-5 (Version None)
Quarter: 2008Q3

REPORT INFORMATION
  Report Type: 
  Country: None (occurrence: None)
  Receive Date: 20080814
  Receipt Date: 20080812
  Transmission Date: 20090109
  Serious: Yes (Other)
  Sender: FDA-Public Use
  Company Number: US-BRISTOL-MYERS SQUIBB COMPANY-14299689

PATIENT
  Age: 74 Year
  Sex: Male
  Weight: 67 kg

DRUGS (1)
  1. KENALOG-40 [Suspect]
     Indication: ARTHRITIS
     Dosage: THERAPY DATES: JUN08,JUL08
     Dates: start: 20080601

REACTIONS (1)
  - CHORIORETINOPATHY [None]
